FAERS Safety Report 8572445-X (Version None)
Quarter: 2012Q3

REPORT INFORMATION
  Report Type: 
  Country: None (occurrence: None)
  Receive Date: 20120806
  Receipt Date: 20120723
  Transmission Date: 20120928
  Serious: No
  Sender: FDA-Public Use
  Company Number: US-ASTRAZENECA-2012SE52179

PATIENT
  Age: 6 Year
  Sex: Male
  Weight: 22.7 kg

DRUGS (1)
  1. SYMBICORT [Suspect]
     Indication: ASTHMA
     Dosage: 80/4.5 MGS TWO PUFFS TWO TIMES A DAY
     Route: 055

REACTIONS (2)
  - OFF LABEL USE [None]
  - WHEEZING [None]
